FAERS Safety Report 4359722-3 (Version None)
Quarter: 2004Q2

REPORT INFORMATION
  Report Type: 
  Country: None (occurrence: None)
  Receive Date: 20040513
  Receipt Date: 20040426
  Transmission Date: 20050107
  Serious: Yes (Hospitalization)
  Sender: FDA-Public Use
  Company Number: 2004S1000448

PATIENT
  Age: 44 Year
  Sex: Male

DRUGS (1)
  1. DOXORUBICIN HCL [Suspect]
     Indication: HEPATIC NEOPLASM MALIGNANT
     Dosage: 60 MG/M^2;EVERY THREE WEEKS; INTRAVENOUS
     Route: 042
     Dates: start: 20031224, end: 20040407

REACTIONS (1)
  - NEUTROPENIA [None]
